FAERS Safety Report 9861663 (Version 2)
Quarter: 2014Q1

REPORT INFORMATION
  Report Type: Spontaneous
  Country: US (occurrence: US)
  Receive Date: 20140203
  Receipt Date: 20140203
  Transmission Date: 20141002
  Serious: Yes (Death, Hospitalization)
  Sender: FDA-Public Use
  Company Number: US-BEH-2011029523

PATIENT
  Sex: Female
  Weight: 63 kg

DRUGS (4)
  1. HIZENTRA [Suspect]
     Indication: IMMUNODEFICIENCY COMMON VARIABLE
     Dosage: 2 GM 10 ML VIAL; 50 ML IN 2-4 SITES OVER 1-2 HOURS
     Route: 058
  2. HIZENTRA [Suspect]
     Indication: HYPOGAMMAGLOBULINAEMIA
     Dosage: 4 GM 20 ML VIAL
     Route: 058
  3. HIZENTRA [Suspect]
     Indication: LABORATORY TEST ABNORMAL
     Route: 058
     Dates: start: 20120611
  4. HIZENTRA [Suspect]
     Indication: CHRONIC LYMPHOCYTIC LEUKAEMIA

REACTIONS (7)
  - Death [Fatal]
  - Diverticulitis [Recovered/Resolved]
  - Transfusion [Recovered/Resolved]
  - Fatigue [Recovered/Resolved]
  - Pruritus [Recovered/Resolved]
  - Infusion site erythema [Recovered/Resolved]
  - Drug dose omission [Unknown]
